FAERS Safety Report 8086366-2 (Version None)
Quarter: 2012Q1

REPORT INFORMATION
  Report Type: 
  Country: None (occurrence: None)
  Receive Date: 20120128
  Receipt Date: 20110510
  Transmission Date: 20120608
  Serious: No
  Sender: FDA-Public Use
  Company Number: US-ABBOTT-11P-163-0724648-00

PATIENT
  Age: 38 Year
  Sex: Male

DRUGS (3)
  1. DICLOFENAC [Concomitant]
     Indication: ANTIINFLAMMATORY THERAPY
  2. HUMIRA [Suspect]
     Indication: ANKYLOSING SPONDYLITIS
     Dates: start: 20110414
  3. PREDNISONE TAB [Concomitant]
     Indication: PRODUCT USED FOR UNKNOWN INDICATION

REACTIONS (3)
  - ARTHRALGIA [None]
  - PAIN IN EXTREMITY [None]
  - FATIGUE [None]
